FAERS Safety Report 24806801 (Version 2)
Quarter: 2025Q1

REPORT INFORMATION
  Report Type: Spontaneous
  Country: US (occurrence: US)
  Receive Date: 20250104
  Receipt Date: 20250131
  Transmission Date: 20250408
  Serious: No
  Sender: AMGEN
  Company Number: US-AMGEN-USASP2025000248

PATIENT
  Age: 77 Year
  Sex: Male

DRUGS (1)
  1. REPATHA [Suspect]
     Active Substance: EVOLOCUMAB
     Indication: Product used for unknown indication
     Route: 058
     Dates: start: 202403

REACTIONS (3)
  - Injection site haemorrhage [Unknown]
  - Incorrect dose administered by product [Unknown]
  - Product preparation error [Unknown]

NARRATIVE: CASE EVENT DATE: 20250102
